FAERS Safety Report 9552937 (Version 1)
Quarter: 2013Q3

REPORT INFORMATION
  Report Type: Spontaneous
  Country: US (occurrence: US)
  Receive Date: 20130925
  Receipt Date: 20130925
  Transmission Date: 20140515
  Serious: No
  Sender: FDA-Public Use
  Company Number: US-PURDUE-USA-2012-0096138

PATIENT
  Sex: Male

DRUGS (2)
  1. TRAMADOL (SIMILAR TO NDA 21-745) [Suspect]
     Indication: PAIN
     Route: 048
  2. PERCOCET                           /00867901/ [Concomitant]
     Indication: BREAKTHROUGH PAIN

REACTIONS (1)
  - Breakthrough pain [Unknown]
